FAERS Safety Report 21146987 (Version 1)
Quarter: 2022Q3

REPORT INFORMATION
  Report Type: Spontaneous
  Country: US (occurrence: US)
  Receive Date: 20220729
  Receipt Date: 20220729
  Transmission Date: 20221026
  Serious: Yes (Other)
  Sender: FDA-Public Use
  Company Number: US-PFIZER INC-202201006315

PATIENT
  Age: 75 Year
  Sex: Male
  Weight: 83.91 kg

DRUGS (2)
  1. PAXLOVID [Suspect]
     Active Substance: NIRMATRELVIR\RITONAVIR
     Indication: COVID-19 treatment
     Dosage: 3 DF, 2X/DAY (3 IN THE MORNING AND 3 IN THE AFTERNOON)
     Dates: start: 20220724
  2. TYLENOL [Concomitant]
     Active Substance: ACETAMINOPHEN
     Dosage: 500 MG, 3X/DAY (ONCE EVERY 8 HOURS)
     Dates: start: 20220724

REACTIONS (4)
  - Gastrointestinal oedema [Not Recovered/Not Resolved]
  - Pain [Recovered/Resolved]
  - Testicular swelling [Unknown]
  - Diarrhoea [Recovered/Resolved]

NARRATIVE: CASE EVENT DATE: 20220725
